FAERS Safety Report 7018935-2 (Version None)
Quarter: 2010Q3

REPORT INFORMATION
  Report Type: 
  Country: None (occurrence: None)
  Receive Date: 20100928
  Receipt Date: 20100914
  Transmission Date: 20110219
  Serious: Yes (Other)
  Sender: FDA-Public Use
  Company Number: US-MYLANLABS-2010S1016794

PATIENT
  Age: 49 Year
  Sex: Female

DRUGS (5)
  1. CLOZAPINE [Suspect]
     Indication: SCHIZOPHRENIA, PARANOID TYPE
     Dosage: 250MG QAM
     Route: 065
  2. CLOZAPINE [Suspect]
     Dosage: 300MG QHS
     Route: 065
  3. ESCITALOPRAM [Concomitant]
     Route: 065
  4. TRAZODONE [Concomitant]
     Dosage: 200MG AT NIGHT
     Route: 065
  5. LAMOTRIGINE [Concomitant]
     Route: 065

REACTIONS (1)
  - CATATONIA [None]
